FAERS Safety Report 13540819 (Version 3)
Quarter: 2017Q2

REPORT INFORMATION
  Report Type: Spontaneous
  Country: BE (occurrence: BE)
  Receive Date: 20170512
  Receipt Date: 20170605
  Transmission Date: 20170830
  Serious: Yes (Other)
  Sender: FDA-Public Use
  Company Number: BE-ABBVIE-17K-013-1972705-00

PATIENT
  Age: 30 Year
  Sex: Female

DRUGS (3)
  1. HUMIRA [Suspect]
     Active Substance: ADALIMUMAB
     Indication: CROHN^S DISEASE
     Route: 058
     Dates: start: 201606, end: 201606
  2. HUMIRA [Suspect]
     Active Substance: ADALIMUMAB
     Route: 058
  3. HUMIRA [Suspect]
     Active Substance: ADALIMUMAB
     Route: 058

REACTIONS (11)
  - Dyspepsia [Recovered/Resolved]
  - Exposure during pregnancy [Unknown]
  - Alopecia [Recovered/Resolved]
  - Abortion spontaneous [Unknown]
  - Arthralgia [Recovered/Resolved]
  - Drug effect delayed [Recovered/Resolved]
  - Faecal calprotectin abnormal [Unknown]
  - Foetal death [Unknown]
  - Dermatitis acneiform [Recovered/Resolved]
  - Therapeutic response shortened [Recovered/Resolved]
  - Crohn^s disease [Unknown]

NARRATIVE: CASE EVENT DATE: 201701
